FAERS Safety Report 18221226 (Version 1)
Quarter: 2020Q3

REPORT INFORMATION
  Report Type: Spontaneous
  Country: US (occurrence: US)
  Receive Date: 20200901
  Receipt Date: 20200901
  Transmission Date: 20201103
  Serious: No
  Sender: FDA-Public Use
  Company Number: None

PATIENT
  Age: 73 Year
  Sex: Male
  Weight: 88.83 kg

DRUGS (9)
  1. COREG 6.25MG [Concomitant]
  2. CAPECITABINE. [Suspect]
     Active Substance: CAPECITABINE
     Indication: COLON CANCER
     Route: 048
     Dates: start: 20200123, end: 20200831
  3. TERAZOSIN 5MG [Concomitant]
  4. ASPIRIN 81MG [Concomitant]
     Active Substance: ASPIRIN
  5. CEPHALEXIN 500MG [Concomitant]
     Active Substance: CEPHALEXIN
  6. COZAAR 25MG [Concomitant]
  7. PRILOSEC [Concomitant]
     Active Substance: OMEPRAZOLE MAGNESIUM
  8. BRILINTA [Concomitant]
     Active Substance: TICAGRELOR
  9. IMDUR 30MG [Concomitant]

REACTIONS (1)
  - Drug ineffective [None]

NARRATIVE: CASE EVENT DATE: 20200901
